FAERS Safety Report 22079834 (Version 1)
Quarter: 2023Q1

REPORT INFORMATION
  Report Type: Spontaneous
  Country: US (occurrence: None)
  Receive Date: 20230308
  Receipt Date: 20230308
  Transmission Date: 20230418
  Serious: No
  Sender: FDA-Public Use
  Company Number: None

PATIENT
  Sex: Male

DRUGS (1)
  1. REMICADE [Suspect]
     Active Substance: INFLIXIMAB
     Indication: Crohn^s disease
     Dosage: OTHER STRENGTH : 100MG/VL;?OTHER FREQUENCY : EVERY 6 WEEKS;?
     Route: 042
     Dates: start: 20220916

REACTIONS (2)
  - Fatigue [None]
  - Abdominal pain [None]
